FAERS Safety Report 13667410 (Version 1)
Quarter: 2017Q2

REPORT INFORMATION
  Report Type: Spontaneous
  Country: US (occurrence: US)
  Receive Date: 20170620
  Receipt Date: 20170620
  Transmission Date: 20170830
  Serious: Yes (Hospitalization)
  Sender: FDA-Public Use
  Company Number: US-ASTRAZENECA-2017SE63135

PATIENT
  Age: 48 Year
  Sex: Female
  Weight: 68 kg

DRUGS (6)
  1. SYMBICORT [Suspect]
     Active Substance: BUDESONIDE\FORMOTEROL FUMARATE DIHYDRATE
     Indication: CHRONIC OBSTRUCTIVE PULMONARY DISEASE
     Dosage: 160/4.5 MCG, 1 INHALATION, TWO TIMES A DAY
     Route: 055
     Dates: start: 2006
  2. GABAPENTIN. [Concomitant]
     Active Substance: GABAPENTIN
     Indication: NEUROPATHY PERIPHERAL
     Route: 048
     Dates: start: 2012
  3. XANAX [Concomitant]
     Active Substance: ALPRAZOLAM
     Indication: ANXIETY
     Route: 048
  4. SYMBICORT [Suspect]
     Active Substance: BUDESONIDE\FORMOTEROL FUMARATE DIHYDRATE
     Indication: EMPHYSEMA
     Dosage: 160/4.5 MCG, 1 INHALATION, TWO TIMES A DAY
     Route: 055
     Dates: start: 2006
  5. OXYGEN. [Concomitant]
     Active Substance: OXYGEN
     Indication: OXYGEN CONSUMPTION DECREASED
     Route: 055
     Dates: start: 2009
  6. CLARITIN [Concomitant]
     Active Substance: LORATADINE
     Indication: MULTIPLE ALLERGIES
     Dosage: DAILY
     Route: 048
     Dates: start: 2012

REACTIONS (14)
  - Chronic obstructive pulmonary disease [Unknown]
  - Visual impairment [Unknown]
  - Dyspnoea [Unknown]
  - Cardiac failure congestive [Unknown]
  - Cardiac failure [Unknown]
  - Drug dose omission [Unknown]
  - Weight increased [Not Recovered/Not Resolved]
  - Neuropathy peripheral [Unknown]
  - Swelling [Unknown]
  - Emphysema [Unknown]
  - Hypertension [Unknown]
  - Arthritis [Unknown]
  - Cardiac disorder [Unknown]
  - Off label use [Unknown]

NARRATIVE: CASE EVENT DATE: 2007
